FAERS Safety Report 10290607 (Version 1)
Quarter: 2014Q3

REPORT INFORMATION
  Report Type: Spontaneous
  Country: SE (occurrence: None)
  Receive Date: 20140708
  Receipt Date: 20140708
  Transmission Date: 20150326
  Serious: Yes (Hospitalization)
  Sender: FDA-Public Use
  Company Number: SE-20140006

PATIENT
  Age: 37 Year

DRUGS (2)
  1. DOTAREM [Suspect]
     Active Substance: GADOTERATE MEGLUMINE
     Indication: PRODUCT USED FOR UNKNOWN INDICATION
     Dates: start: 20071220, end: 20071220
  2. DORMICUM (MIDAZOLAM) (MIDAZOLAM) [Concomitant]

REACTIONS (5)
  - Tachycardia [None]
  - General physical health deterioration [None]
  - Flushing [None]
  - Rash erythematous [None]
  - Pruritus [None]

NARRATIVE: CASE EVENT DATE: 20071220
